FAERS Safety Report 6129653-7 (Version None)
Quarter: 2009Q1

REPORT INFORMATION
  Report Type: 
  Country: None (occurrence: None)
  Receive Date: 20090323
  Receipt Date: 20090323
  Transmission Date: 20090719
  Serious: Yes (Hospitalization)
  Sender: FDA-Public Use
  Company Number: None

PATIENT
  Age: 74 Year
  Sex: Male
  Weight: 115 kg

DRUGS (14)
  1. WARFARIN SODIUM [Suspect]
     Indication: AORTIC VALVE REPLACEMENT
     Dosage: 7.5MG M/W/F, 5MG OTH  (DURATION: CHRONIC)
  2. GLIPIZIDE [Concomitant]
  3. ASPIRIN [Concomitant]
  4. POTASSIUM CHLORIDE [Concomitant]
  5. LORATADINE [Concomitant]
  6. NIFEDIPINE [Concomitant]
  7. LOSARTAN POTASSIUM [Concomitant]
  8. LABETALOL HCL [Concomitant]
  9. GUAIFENESIN [Concomitant]
  10. SIMVASTATIN [Concomitant]
  11. METFORMIN [Concomitant]
  12. FUROSEMIDE [Concomitant]
  13. CLONIDINE [Concomitant]
  14. OMEPRAZOLE [Concomitant]

REACTIONS (3)
  - HAEMOGLOBIN DECREASED [None]
  - INTERNATIONAL NORMALISED RATIO INCREASED [None]
  - RECTAL HAEMORRHAGE [None]
